FAERS Safety Report 8098254-6 (Version None)
Quarter: 2012Q1

REPORT INFORMATION
  Report Type: 
  Country: None (occurrence: None)
  Receive Date: 20120128
  Receipt Date: 20110805
  Transmission Date: 20120608
  Serious: No
  Sender: FDA-Public Use
  Company Number: US-ABBOTT-11P-163-0844560-00

PATIENT
  Age: 44 Year
  Sex: Female

DRUGS (4)
  1. PREDNISONE TAB [Concomitant]
     Indication: PRODUCT USED FOR UNKNOWN INDICATION
     Dosage: 10-15MG DAILY
     Route: 048
  2. UNKNOWN MEDICATION [Concomitant]
     Indication: CONTRACEPTION
     Dosage: DAILY
     Route: 048
  3. PILOCARPINE [Concomitant]
     Indication: SJOGREN'S SYNDROME
     Route: 048
  4. HUMIRA [Suspect]
     Indication: PSORIATIC ARTHROPATHY
     Dates: start: 20110805

REACTIONS (2)
  - INJECTION SITE HAEMATOMA [None]
  - INJECTION SITE PAIN [None]
